FAERS Safety Report 8340848-4 (Version None)
Quarter: 2012Q1

REPORT INFORMATION
  Report Type: 
  Country: None (occurrence: None)
  Receive Date: 20120329
  Receipt Date: 20090212
  Transmission Date: 20120608
  Serious: Yes (Other)
  Sender: FDA-Public Use
  Company Number: PHEH2009US01669

PATIENT
  Age: 76 Year
  Sex: Male

DRUGS (14)
  1. CALCIUM CARBONATE [Concomitant]
  2. ENABLEX [Concomitant]
  3. ASCORBIC ACID [Concomitant]
  4. MUCINEX [Concomitant]
  5. EXELON [Suspect]
     Indication: HYDROCEPHALUS
     Dosage: 4.6 MG, QD, TRANSDERMAL ; 9.5 MG, QD
     Dates: start: 20090101
  6. VYTORIN (EZETIMIBE, SMIVASTATIN) [Concomitant]
  7. MIRALAX [Concomitant]
  8. FLOMAX [Concomitant]
  9. METOPROLOL TARTRATE [Concomitant]
  10. FOLIC ACID [Concomitant]
  11. GLUCOSAMINE W/CHONDROITIN (CHONDROITIN SULFATE, GLUCOSAMINE) [Concomitant]
  12. ASPIRIN [Concomitant]
  13. VITAMIN E [Concomitant]
  14. MULTIVITAMINS (ASCORBIC ACID, ERGOCALCIFEROL, FOLIC ACID, NICOTINAMIDE [Concomitant]

REACTIONS (2)
  - ACTIVITIES OF DAILY LIVING IMPAIRED [None]
  - CONFUSIONAL STATE [None]
